FAERS Safety Report 7573641-0 (Version None)
Quarter: 2011Q2

REPORT INFORMATION
  Report Type: 
  Country: None (occurrence: None)
  Receive Date: 20110627
  Receipt Date: 20110621
  Transmission Date: 20111010
  Serious: Yes (Death, Life-Threatening, Hospitalization, Other)
  Sender: FDA-Public Use
  Company Number: BG-CELGENEUS-022-C5013-11052218

PATIENT
  Sex: Female
  Weight: 70.9 kg

DRUGS (17)
  1. CIPROFLOXACIN [Suspect]
  2. CIPROFLOXACIN [Suspect]
     Indication: COUGH
  3. RAMIPRIL [Concomitant]
     Indication: HYPERTENSION
     Dosage: 5 MILLIGRAM
     Route: 048
     Dates: start: 20030101, end: 20110519
  4. DEXAMETHASONE ACETATE [Concomitant]
     Dosage: 100 MILLIGRAM
     Route: 048
     Dates: start: 20100101
  5. FURANTHRIL [Concomitant]
     Dosage: 40 MILLIGRAM
     Route: 065
  6. VIVACE [Concomitant]
     Route: 065
     Dates: start: 20010101, end: 20110519
  7. LENALIDOMIDE [Suspect]
     Dosage: 5 MILLIGRAM
     Route: 048
     Dates: start: 20110427, end: 20110517
  8. TROXENES [Concomitant]
     Indication: THROMBOPHLEBITIS
     Route: 048
     Dates: start: 20110401
  9. FURANTHRIL [Concomitant]
     Indication: ASCITES
     Dosage: 40 MILLIGRAM
     Route: 065
     Dates: start: 20110521
  10. BISOGAMMA [Concomitant]
     Indication: HYPERTENSION
     Dosage: 5 MILLIGRAM
     Route: 048
     Dates: start: 20030101
  11. MILURIT [Concomitant]
     Route: 065
     Dates: end: 20110517
  12. CIPROFLOXACIN [Suspect]
     Route: 065
     Dates: start: 20110514, end: 20110515
  13. FRAGMIN [Concomitant]
     Indication: THROMBOPHLEBITIS
     Route: 058
     Dates: start: 20110427
  14. SPIRONOLACTONE [Concomitant]
     Indication: HYPERTENSION
     Dosage: 25 MILLIGRAM
     Route: 048
     Dates: start: 20100101
  15. ACETIZAL [Concomitant]
     Dosage: 100 MILLIGRAM
     Route: 065
  16. SPIRONOLACTONE [Concomitant]
     Indication: ASCITES
     Dosage: 150 MILLIGRAM
     Route: 048
     Dates: start: 20110521
  17. FUREUTHONIL [Concomitant]
     Indication: HYPERTENSION
     Dosage: 40 MILLIGRAM
     Route: 048
     Dates: start: 20100101

REACTIONS (2)
  - HEPATITIS TOXIC [None]
  - CARDIOPULMONARY FAILURE [None]
